FAERS Safety Report 10011605 (Version 1)
Quarter: 2014Q1

REPORT INFORMATION
  Report Type: Spontaneous
  Country: US (occurrence: None)
  Receive Date: 20140313
  Receipt Date: 20140313
  Transmission Date: 20141002
  Serious: Yes (Other)
  Sender: FDA-Public Use
  Company Number: None

PATIENT
  Sex: 0

DRUGS (1)
  1. RISPERDAL [Suspect]

REACTIONS (6)
  - Gynaecomastia [None]
  - Blood prolactin increased [None]
  - Pain [None]
  - Chest pain [None]
  - Nipple swelling [None]
  - Dyspnoea [None]
